FAERS Safety Report 8895655 (Version 2)
Quarter: 2013Q1

REPORT INFORMATION
  Report Type: Report from Study
  Country: FR (occurrence: FR)
  Receive Date: 20121108
  Receipt Date: 20130226
  Transmission Date: 20140127
  Serious: Yes (Hospitalization)
  Sender: FDA-Public Use
  Company Number: FR-ROCHE-1150726

PATIENT
  Age: 61 Year
  Sex: Male

DRUGS (4)
  1. MYCOPHENOLATE MOFETIL [Suspect]
     Indication: NEPHROPATHY TOXIC
     Route: 048
     Dates: start: 20120213, end: 20120416
  2. NEORAL [Suspect]
     Indication: NEPHROPATHY TOXIC
     Route: 048
     Dates: start: 20120213, end: 20120416
  3. SOLUPRED (FRANCE) [Suspect]
     Indication: NEPHROPATHY TOXIC
     Route: 048
     Dates: start: 20120213, end: 20120418
  4. CORTANCYL [Suspect]
     Indication: NEPHROPATHY TOXIC
     Route: 048
     Dates: start: 20120419, end: 20120419

REACTIONS (6)
  - Vascular graft thrombosis [Recovered/Resolved]
  - Perirenal haematoma [Recovered/Resolved]
  - Renal impairment [Recovered/Resolved]
  - Escherichia sepsis [Recovered/Resolved]
  - Enterococcal infection [Recovered/Resolved]
  - Arterial rupture [Recovered/Resolved]
